FAERS Safety Report 8905782 (Version 2)
Quarter: 2012Q4

REPORT INFORMATION
  Report Type: 
  Country: JP (occurrence: JP)
  Receive Date: 20121113
  Receipt Date: 20121228
  Transmission Date: 20130627
  Serious: Yes (Hospitalization)
  Sender: FDA-Public Use
  Company Number: JP-009507513-2012SP026638

PATIENT
  Age: 54 Year
  Sex: Female
  Weight: 62 kg

DRUGS (10)
  1. PEGINTRON [Suspect]
     Indication: CHRONIC HEPATITIS C
     Dosage: 1.5 Microgram per kilogram,qw
     Route: 058
     Dates: start: 20120307, end: 20120327
  2. PEGINTRON [Suspect]
     Dosage: 1.2Microgram per kilogram,qw
     Route: 058
     Dates: start: 20120403
  3. REBETOL [Suspect]
     Indication: CHRONIC HEPATITIS C
     Dosage: 600 mg, QD
     Route: 048
     Dates: start: 20120307, end: 20120329
  4. REBETOL [Suspect]
     Dosage: 400 mg, QD
     Route: 048
     Dates: start: 20120330
  5. TELAVIC [Suspect]
     Indication: CHRONIC HEPATITIS C
     Dosage: 2250 mg, qd
     Route: 048
     Dates: start: 20120307, end: 20120329
  6. TELAVIC [Suspect]
     Dosage: 1500mg, qd
     Route: 048
     Dates: start: 20120330
  7. DICLOFENAC [Concomitant]
     Indication: PROPHYLAXIS
     Dosage: DOSE: 12.5 MG/DAY AS NEEDED.
     Route: 054
     Dates: start: 20120307
  8. ASPIRIN (+) DIHYDROXYALUMINUM AMINOACETATE (+) MAGNESIUM CARBONATE [Concomitant]
     Indication: PROPHYLAXIS
     Dosage: FORMULATION: POR. 330 MG QD PRN
     Route: 048
     Dates: start: 20120307
  9. VOLTAREN [Concomitant]
     Indication: PROPHYLAXIS
     Dosage: 12.5 mg per day, as needed
     Route: 054
     Dates: start: 20120307
  10. BUFFERIN [Concomitant]
     Indication: PROPHYLAXIS
     Dosage: 330 mg/day, as needed
     Route: 048
     Dates: start: 20120307

REACTIONS (1)
  - Decreased appetite [Recovered/Resolved]
